FAERS Safety Report 7386974-8 (Version None)
Quarter: 2011Q1

REPORT INFORMATION
  Report Type: 
  Country: None (occurrence: None)
  Receive Date: 20110323
  Receipt Date: 20110310
  Transmission Date: 20110831
  Serious: Yes (Hospitalization)
  Sender: FDA-Public Use
  Company Number: MIN-00688

PATIENT
  Age: 16 Year
  Sex: Male
  Weight: 62.4 kg

DRUGS (1)
  1. MINOCYCLINE, 50MG [Suspect]
     Indication: ACNE
     Dosage: 50 MG TWICE DAILY, ORAL
     Route: 048
     Dates: start: 19991101, end: 19991108

REACTIONS (3)
  - STEVENS-JOHNSON SYNDROME [None]
  - PAROTITIS [None]
  - LYMPHADENOPATHY [None]
